FAERS Safety Report 7671277-4 (Version None)
Quarter: 2011Q3

REPORT INFORMATION
  Report Type: 
  Country: None (occurrence: None)
  Receive Date: 20110809
  Receipt Date: 20110729
  Transmission Date: 20111222
  Serious: Yes (Hospitalization)
  Sender: FDA-Public Use
  Company Number: CA-JNJFOC-20110801538

PATIENT
  Sex: Male
  Weight: 98.9 kg

DRUGS (8)
  1. OTHER THERAPEUTIC MEDICATION [Concomitant]
  2. CELEXA [Concomitant]
  3. PENTASA [Concomitant]
  4. VITAMIN B-12 [Concomitant]
  5. REMICADE [Suspect]
     Indication: CROHN'S DISEASE
     Route: 042
     Dates: start: 20090831
  6. ASCORBIC ACID [Concomitant]
  7. CALCIUM CARBONATE [Concomitant]
  8. IMOVANE [Concomitant]

REACTIONS (1)
  - UNEVALUABLE EVENT [None]
